FAERS Safety Report 10782391 (Version 2)
Quarter: 2015Q2

REPORT INFORMATION
  Report Type: Spontaneous
  Country: US (occurrence: US)
  Receive Date: 20150210
  Receipt Date: 20150522
  Transmission Date: 20150821
  Serious: Yes (Other)
  Sender: FDA-Public Use
  Company Number: US-PFIZER INC-2015053436

PATIENT
  Age: 78 Year
  Sex: Male
  Weight: 75 kg

DRUGS (1)
  1. LYRICA [Suspect]
     Active Substance: PREGABALIN
     Dosage: 225 MG, DAILY
     Route: 048
     Dates: end: 20150203

REACTIONS (5)
  - Hypoaesthesia [Not Recovered/Not Resolved]
  - Product label issue [Unknown]
  - Drug dependence [Unknown]
  - Pain in extremity [Unknown]
  - Pain [Unknown]
